FAERS Safety Report 24867509 (Version 2)
Quarter: 2025Q1

REPORT INFORMATION
  Report Type: Spontaneous
  Country: US (occurrence: US)
  Receive Date: 20250121
  Receipt Date: 20250206
  Transmission Date: 20250409
  Serious: No
  Sender: MERZ
  Company Number: US-Merz Pharmaceuticals GmbH-2025010000047

PATIENT

DRUGS (3)
  1. XEOMIN [Suspect]
     Active Substance: INCOBOTULINUMTOXINA
     Indication: Skin wrinkling
     Dates: start: 20241205, end: 20241205
  2. XEOMIN [Suspect]
     Active Substance: INCOBOTULINUMTOXINA
     Indication: Skin cosmetic procedure
     Dosage: 11 INTERNATIONAL UNIT
     Dates: start: 20241219, end: 20241219
  3. XEOMIN [Suspect]
     Active Substance: INCOBOTULINUMTOXINA
     Indication: Skin wrinkling

REACTIONS (8)
  - Injection site granuloma [Recovering/Resolving]
  - Injection site induration [Recovering/Resolving]
  - Injection site nodule [Recovering/Resolving]
  - Injection site infection [Unknown]
  - Injection site swelling [Recovered/Resolved]
  - Injection site erythema [Recovered/Resolved]
  - Injection site pain [Not Recovered/Not Resolved]
  - Product preparation issue [Unknown]

NARRATIVE: CASE EVENT DATE: 20241201
